FAERS Safety Report 25417148 (Version 2)
Quarter: 2025Q2

REPORT INFORMATION
  Report Type: Spontaneous
  Country: JP (occurrence: JP)
  Receive Date: 20250610
  Receipt Date: 20250619
  Transmission Date: 20250716
  Serious: Yes (Hospitalization, Other)
  Sender: BRISTOL-MYERS SQUIBB COMPANY
  Company Number: JP-ONO-2025JP009692

PATIENT

DRUGS (1)
  1. OPDIVO [Suspect]
     Active Substance: NIVOLUMAB
     Indication: Gastric cancer
     Route: 041
     Dates: end: 20250411

REACTIONS (5)
  - Epiglottitis [Unknown]
  - Pemphigoid [Unknown]
  - Urinary tract infection [Recovered/Resolved]
  - Gingivitis [Unknown]
  - Pharyngeal inflammation [Unknown]

NARRATIVE: CASE EVENT DATE: 20250504
